FAERS Safety Report 11011355 (Version 1)
Quarter: 2015Q2

REPORT INFORMATION
  Report Type: Spontaneous
  Country: JP (occurrence: JP)
  Receive Date: 20150410
  Receipt Date: 20150410
  Transmission Date: 20150821
  Serious: Yes (Hospitalization)
  Sender: FDA-Public Use
  Company Number: JP-ROCHE-1554849

PATIENT
  Age: 69 Year
  Sex: Male

DRUGS (4)
  1. PREDONINE [Suspect]
     Active Substance: PREDNISOLONE\PREDNISOLONE ACETATE\PREDNISOLONE SODIUM SUCCINATE
     Indication: PRODUCT USED FOR UNKNOWN INDICATION
     Route: 065
  2. METHOTREXATE [Suspect]
     Active Substance: METHOTREXATE
     Indication: PRODUCT USED FOR UNKNOWN INDICATION
     Route: 065
  3. FOLIAMIN [Concomitant]
     Active Substance: FOLIC ACID
     Route: 065
  4. ACTEMRA [Suspect]
     Active Substance: TOCILIZUMAB
     Indication: RHEUMATOID ARTHRITIS
     Dosage: MOST RECENT DOSE PRIOR TO AE: 27/FEB/2015.
     Route: 058
     Dates: start: 20141205, end: 20150227

REACTIONS (3)
  - Ulcer [Recovering/Resolving]
  - Skin mass [Recovering/Resolving]
  - Mycobacterial infection [Recovering/Resolving]

NARRATIVE: CASE EVENT DATE: 20150313
